FAERS Safety Report 15743530 (Version 1)
Quarter: 2018Q4

REPORT INFORMATION
  Report Type: Spontaneous
  Country: US (occurrence: US)
  Receive Date: 20181220
  Receipt Date: 20181220
  Transmission Date: 20190205
  Serious: No
  Sender: FDA-Public Use
  Company Number: US-GLENMARK PHARMACEUTICALS-2018GMK038056

PATIENT

DRUGS (1)
  1. IMIQUIMOD. [Suspect]
     Active Substance: IMIQUIMOD
     Indication: ANOGENITAL WARTS
     Dosage: UNK
     Route: 061
     Dates: start: 20180926, end: 20181023

REACTIONS (3)
  - Genital lesion [Recovered/Resolved]
  - Drug ineffective [Unknown]
  - Application site vesicles [Recovered/Resolved]

NARRATIVE: CASE EVENT DATE: 20181020
